FAERS Safety Report 4931918-9 (Version None)
Quarter: 2006Q1

REPORT INFORMATION
  Report Type: 
  Country: None (occurrence: None)
  Receive Date: 20060303
  Receipt Date: 20030605
  Transmission Date: 20060701
  Serious: Yes (Disabling)
  Sender: FDA-Public Use
  Company Number: US-MERCK-0306USA00879

PATIENT
  Age: 66 Year
  Sex: Female
  Weight: 87 kg

DRUGS (2)
  1. VIOXX [Suspect]
     Indication: PAIN
     Route: 048
     Dates: start: 19991201, end: 20010415
  2. LORTAB [Concomitant]
     Route: 048
     Dates: start: 19991101

REACTIONS (9)
  - ADVERSE EVENT [None]
  - ARRHYTHMIA [None]
  - BACK INJURY [None]
  - CONTUSION [None]
  - HEADACHE [None]
  - MENISCUS LESION [None]
  - NECK INJURY [None]
  - PATELLOFEMORAL PAIN SYNDROME [None]
  - ROAD TRAFFIC ACCIDENT [None]
